FAERS Safety Report 21675532 (Version 3)
Quarter: 2023Q2

REPORT INFORMATION
  Report Type: Spontaneous
  Country: US (occurrence: US)
  Receive Date: 20221202
  Receipt Date: 20230609
  Transmission Date: 20230721
  Serious: No
  Sender: FDA-Public Use
  Company Number: US-BRISTOL-MYERS SQUIBB COMPANY-2022-146991

PATIENT
  Age: 64 Year
  Sex: Male
  Weight: 81.82 kg

DRUGS (3)
  1. REVLIMID [Suspect]
     Active Substance: LENALIDOMIDE
     Indication: Plasma cell myeloma
     Route: 048
     Dates: start: 20220830
  2. REVLIMID [Suspect]
     Active Substance: LENALIDOMIDE
     Route: 048
     Dates: start: 2017
  3. REVLIMID [Suspect]
     Active Substance: LENALIDOMIDE
     Dosage: FREQUENCY: DAILY ON DAYS 1-21 OF 28 DAY CYCLE
     Route: 048
     Dates: start: 20220823

REACTIONS (6)
  - Red blood cell count decreased [Not Recovered/Not Resolved]
  - Respiratory disorder [Unknown]
  - Nasopharyngitis [Unknown]
  - Product dose omission issue [Unknown]
  - Cough [Recovered/Resolved]
  - Nasal congestion [Recovered/Resolved]
